FAERS Safety Report 6340569-3 (Version None)
Quarter: 2009Q3

REPORT INFORMATION
  Report Type: 
  Country: None (occurrence: None)
  Receive Date: 20090904
  Receipt Date: 20090819
  Transmission Date: 20100115
  Serious: Yes (Other)
  Sender: FDA-Public Use
  Company Number: IR-BAYER-200929103GPV

PATIENT
  Age: 75 Year
  Sex: Male

DRUGS (4)
  1. NEXAVAR [Suspect]
     Indication: HEPATIC NEOPLASM MALIGNANT
     Dosage: TOTAL DAILY DOSE: 800 MG
     Route: 048
     Dates: start: 20090603
  2. NEXAVAR [Suspect]
     Dosage: AS USED: 200 MG
     Route: 048
  3. METRONIDAZOLE [Concomitant]
     Dates: start: 20090801
  4. LACTULOSE [Concomitant]
     Indication: HEPATIC ENCEPHALOPATHY PROPHYLAXIS
     Dates: start: 20090801

REACTIONS (1)
  - DEPRESSED LEVEL OF CONSCIOUSNESS [None]
